FAERS Safety Report 9940608 (Version 1)
Quarter: 2014Q1

REPORT INFORMATION
  Report Type: Spontaneous
  Country: US (occurrence: US)
  Receive Date: 20140303
  Receipt Date: 20140303
  Transmission Date: 20141002
  Serious: No
  Sender: FDA-Public Use
  Company Number: US-BAYER-2014-030645

PATIENT
  Age: 9 Year
  Sex: Male
  Weight: 36 kg

DRUGS (1)
  1. ALEVE CAPLET [Suspect]
     Indication: PRODUCT USED FOR UNKNOWN INDICATION
     Dosage: 1 DF, ONCE
     Route: 048
     Dates: start: 20140225, end: 20140225

REACTIONS (5)
  - Intentional drug misuse [None]
  - Eye irritation [Recovered/Resolved]
  - Eye swelling [Recovered/Resolved]
  - Nasal congestion [Recovered/Resolved]
  - Somnolence [None]
